FAERS Safety Report 13182026 (Version 3)
Quarter: 2017Q3

REPORT INFORMATION
  Report Type: Spontaneous
  Country: US (occurrence: US)
  Receive Date: 20170202
  Receipt Date: 20170724
  Transmission Date: 20171127
  Serious: No
  Sender: FDA-Public Use
  Company Number: US-IMPAX LABORATORIES, INC-2017-IPXL-00022

PATIENT
  Age: 60 Year
  Sex: Male
  Weight: 93 kg

DRUGS (7)
  1. CARBIDOPA-LEVODOPA ER [Suspect]
     Active Substance: CARBIDOPA\LEVODOPA
     Indication: PARKINSON^S DISEASE
     Dosage: UNK
     Route: 065
  2. MIRAPEX [Suspect]
     Active Substance: PRAMIPEXOLE DIHYDROCHLORIDE
     Dosage: UNK, BEDTIME
     Route: 048
  3. MIRAPEX [Suspect]
     Active Substance: PRAMIPEXOLE DIHYDROCHLORIDE
     Dosage: UNK, MORNING
     Route: 048
  4. PRAMIPEXOLE. [Concomitant]
     Active Substance: PRAMIPEXOLE
     Indication: PRODUCT USED FOR UNKNOWN INDICATION
     Dosage: 4.5 MG, 1 /DAY
     Route: 048
  5. MIRAPEX [Suspect]
     Active Substance: PRAMIPEXOLE DIHYDROCHLORIDE
     Indication: PRODUCT USED FOR UNKNOWN INDICATION
     Dosage: 4.5 MG, 1 /DAY
     Route: 048
  6. RYTARY [Suspect]
     Active Substance: CARBIDOPA\LEVODOPA
     Indication: PARKINSON^S DISEASE
     Dosage: 61.25/245 MG; 3 CAPSULES, 2 /DAY
     Route: 048
     Dates: start: 2017
  7. RYTARY [Suspect]
     Active Substance: CARBIDOPA\LEVODOPA
     Dosage: 61.25/245 MG; 2 CAPSULES, 2 /DAY
     Route: 048
     Dates: start: 2017

REACTIONS (5)
  - Enuresis [Recovered/Resolved]
  - Feeling abnormal [Recovering/Resolving]
  - Night sweats [Recovered/Resolved]
  - Hypersomnia [Recovered/Resolved]
  - Rapid eye movements sleep abnormal [Recovering/Resolving]
